FAERS Safety Report 6037033-8 (Version None)
Quarter: 2009Q1

REPORT INFORMATION
  Report Type: 
  Country: None (occurrence: None)
  Receive Date: 20090114
  Receipt Date: 20090107
  Transmission Date: 20090719
  Serious: Yes (Hospitalization)
  Sender: FDA-Public Use
  Company Number: GR-ABBOTT-08P-066-0485190-00

PATIENT
  Sex: Female
  Weight: 76 kg

DRUGS (3)
  1. HUMIRA [Suspect]
     Indication: RHEUMATOID ARTHRITIS
     Route: 058
     Dates: start: 20080512
  2. LOGIMAX [Concomitant]
     Indication: DRUG USE FOR UNKNOWN INDICATION
     Dosage: (5+47.5) TABLETS - 1 X 1
     Route: 048
     Dates: start: 20070101
  3. ATACAND HCT [Concomitant]
     Indication: DRUG USE FOR UNKNOWN INDICATION
     Dosage: (16+12.5) TABLETS - 1 X 1
     Route: 048
     Dates: start: 20070101

REACTIONS (9)
  - ABDOMINAL PAIN [None]
  - ASTHENIA [None]
  - BLOOD AMYLASE INCREASED [None]
  - CHOLECYSTITIS [None]
  - GALLBLADDER PERFORATION [None]
  - PANCREATIC DISORDER [None]
  - PERITONITIS [None]
  - TRANSAMINASES INCREASED [None]
  - VOMITING [None]
